FAERS Safety Report 23270249 (Version 3)
Quarter: 2024Q1

REPORT INFORMATION
  Report Type: Spontaneous
  Country: SK (occurrence: None)
  Receive Date: 20231207
  Receipt Date: 20240118
  Transmission Date: 20240410
  Serious: Yes (Other)
  Sender: FDA-Public Use
  Company Number: SK-ROCHE-3466006

PATIENT
  Age: 55 Year
  Sex: Male

DRUGS (9)
  1. ALECENSA [Suspect]
     Active Substance: ALECTINIB HYDROCHLORIDE
     Indication: Product used for unknown indication
     Dosage: 2X600 MG PER DAY
     Route: 048
     Dates: start: 20230112
  2. GLICLAZIDE [Concomitant]
     Active Substance: GLICLAZIDE
     Dosage: 1 TAB EVENING
  3. ATORVASTATIN CALCIUM [Concomitant]
     Active Substance: ATORVASTATIN CALCIUM
     Dosage: 0.5 MG TAB EVENING,
  4. .ALPHA.-LIPOIC ACID [Concomitant]
     Active Substance: .ALPHA.-LIPOIC ACID
     Dosage: 1 TABL MORNING
  5. ESSENTIALE [Concomitant]
  6. URSODIOL [Concomitant]
     Active Substance: URSODIOL
     Dosage: 1 TAB EVENING
  7. AMLODIPINE [Concomitant]
     Active Substance: AMLODIPINE BESYLATE
     Dosage: 1 TAB MORNING
  8. ASPIRIN [Concomitant]
     Active Substance: ASPIRIN
     Dosage: 1 TAB LUNCH,
  9. ALLOPURINOL [Concomitant]
     Active Substance: ALLOPURINOL
     Dosage: TAB LUNCH

REACTIONS (2)
  - Nephritis [Unknown]
  - Blood creatinine increased [Unknown]

NARRATIVE: CASE EVENT DATE: 20230209
